FAERS Safety Report 9302668 (Version 4)
Quarter: 2013Q3

REPORT INFORMATION
  Report Type: Spontaneous
  Country: US (occurrence: US)
  Receive Date: 20130522
  Receipt Date: 20130705
  Transmission Date: 20140515
  Serious: No
  Sender: FDA-Public Use
  Company Number: US-JNJFOC-20130410618

PATIENT
  Sex: Male

DRUGS (4)
  1. INVEGA SUSTENNA [Suspect]
     Indication: PRODUCT USED FOR UNKNOWN INDICATION
     Route: 030
     Dates: start: 20121029
  2. AZITHROMYCIN [Concomitant]
     Dosage: UNSPECIFIED DOSE IN THE EVENING
     Route: 065
  3. LEXAPRO [Concomitant]
     Dosage: 10 MG IN THE MORNING
     Route: 065
  4. VYVANSE [Concomitant]
     Dosage: 50 MG IN THE MORNING
     Route: 065

REACTIONS (5)
  - Confusional state [Unknown]
  - Treatment noncompliance [Unknown]
  - Aggression [Unknown]
  - Swollen tongue [Unknown]
  - Hypersensitivity [Unknown]
